FAERS Safety Report 5835866-1 (Version None)
Quarter: 2008Q3

REPORT INFORMATION
  Report Type: 
  Country: None (occurrence: None)
  Receive Date: 20080730
  Receipt Date: 20070809
  Transmission Date: 20090109
  Serious: Yes (Other)
  Sender: FDA-Public Use
  Company Number: 39803

PATIENT
  Age: 58 Year
  Sex: Male
  Weight: 80.2867 kg

DRUGS (2)
  1. PACLITAXEL [Suspect]
     Indication: LUNG NEOPLASM MALIGNANT
     Dosage: 400MG/ Q 3WKS
     Dates: start: 20070710
  2. CARBOPLATIN [Concomitant]

REACTIONS (3)
  - DYSPNOEA [None]
  - FLUSHING [None]
  - WHEEZING [None]
